FAERS Safety Report 25678641 (Version 1)
Quarter: 2025Q3

REPORT INFORMATION
  Report Type: Report from Study
  Country: JP (occurrence: JP)
  Receive Date: 20250814
  Receipt Date: 20250814
  Transmission Date: 20251020
  Serious: Yes (Hospitalization)
  Sender: ABBVIE
  Company Number: JP-ABBVIE-6411737

PATIENT
  Sex: Female

DRUGS (1)
  1. VYALEV [Suspect]
     Active Substance: FOSCARBIDOPA\FOSLEVODOPA
     Indication: Parkinson^s disease
     Route: 058
     Dates: start: 2024

REACTIONS (2)
  - Fracture [Unknown]
  - Infusion site induration [Not Recovered/Not Resolved]
